FAERS Safety Report 22188579 (Version 1)
Quarter: 2023Q2

REPORT INFORMATION
  Report Type: Spontaneous
  Country: US (occurrence: US)
  Receive Date: 20230409
  Receipt Date: 20230409
  Transmission Date: 20230721
  Serious: No
  Sender: FDA-Public Use
  Company Number: US-ELI_LILLY_AND_COMPANY-US202304003486

PATIENT
  Age: 41 Year
  Sex: Male

DRUGS (1)
  1. TALTZ [Suspect]
     Active Substance: IXEKIZUMAB
     Indication: Product used for unknown indication
     Dosage: 80 MG, UNKNOWN
     Route: 065

REACTIONS (5)
  - Chest discomfort [Unknown]
  - Paraesthesia [Unknown]
  - Feeling hot [Unknown]
  - Dizziness [Unknown]
  - Lethargy [Unknown]
